FAERS Safety Report 8699074 (Version 2)
Quarter: 2012Q4

REPORT INFORMATION
  Report Type: 
  Country: JP (occurrence: JP)
  Receive Date: 20120802
  Receipt Date: 20121105
  Transmission Date: 20130627
  Serious: Yes (Other)
  Sender: FDA-Public Use
  Company Number: JP-AMGEN-JPNSP2012046834

PATIENT
  Age: 61 Year
  Sex: Female
  Weight: 50 kg

DRUGS (8)
  1. DARBEPOETIN ALFA [Suspect]
     Indication: NEPHROGENIC ANAEMIA
     Dosage: 30 mug, qmo
     Route: 040
     Dates: start: 20110706, end: 20110706
  2. DARBEPOETIN ALFA [Suspect]
     Dosage: 30 mug, qmo
     Route: 040
     Dates: start: 20110721, end: 20110721
  3. DARBEPOETIN ALFA [Suspect]
     Dosage: 30 mug, qmo
     Route: 040
     Dates: start: 20110802, end: 20110802
  4. DARBEPOETIN ALFA [Suspect]
     Dosage: 40 mug, q4wk
     Route: 040
     Dates: start: 20110829, end: 20120125
  5. CONIEL [Concomitant]
     Indication: HYPERTENSION
     Dosage: 4 mg, qd
     Route: 048
     Dates: start: 20090519
  6. DIOVAN [Concomitant]
     Indication: HYPERTENSION
     Dosage: 80 mg, qd
     Route: 048
     Dates: start: 20090519
  7. EPOGIN [Concomitant]
     Dosage: UNK
  8. MIRCERA [Concomitant]
     Dosage: UNK

REACTIONS (4)
  - Chills [Recovered/Resolved]
  - Renal cyst haemorrhage [Recovered/Resolved]
  - Insomnia [Recovered/Resolved]
  - Urinary tract infection [Recovered/Resolved]
